FAERS Safety Report 21955157 (Version 1)
Quarter: 2023Q1

REPORT INFORMATION
  Report Type: Spontaneous
  Country: US (occurrence: US)
  Receive Date: 20230206
  Receipt Date: 20230206
  Transmission Date: 20230418
  Serious: No
  Sender: FDA-Public Use
  Company Number: US-AUROBINDO-AUR-APL-2022-023924

PATIENT
  Sex: Female

DRUGS (1)
  1. CEFDINIR [Suspect]
     Active Substance: CEFDINIR
     Indication: Urinary tract infection
     Dosage: UNK,

REACTIONS (1)
  - Incorrect route of product administration [Unknown]
